FAERS Safety Report 23075403 (Version 1)
Quarter: 2023Q4

REPORT INFORMATION
  Report Type: Spontaneous
  Country: US (occurrence: None)
  Receive Date: 20231017
  Receipt Date: 20231017
  Transmission Date: 20240109
  Serious: Yes (Life-Threatening)
  Sender: FDA-Public Use
  Company Number: None

PATIENT
  Age: 78 Year
  Sex: Male

DRUGS (1)
  1. ABIRATERONE [Suspect]
     Active Substance: ABIRATERONE
     Dosage: FREQUENCY : DAILY;?

REACTIONS (5)
  - Loss of consciousness [None]
  - Nephropathy [None]
  - Fatigue [None]
  - Asthenia [None]
  - Therapy interrupted [None]

NARRATIVE: CASE EVENT DATE: 20230410
